FAERS Safety Report 10197637 (Version 2)
Quarter: 2014Q2

REPORT INFORMATION
  Report Type: Spontaneous
  Country: US (occurrence: US)
  Receive Date: 20140527
  Receipt Date: 20140527
  Transmission Date: 20141212
  Serious: No
  Sender: FDA-Public Use
  Company Number: US-NOVEN-14US009090

PATIENT
  Sex: Female

DRUGS (3)
  1. MINIVELLE [Suspect]
     Indication: HOT FLUSH
     Dosage: 0.0375 MG/DAY, UNK
     Route: 062
  2. MINIVELLE [Suspect]
     Indication: INSOMNIA
  3. PROGESTERONE [Concomitant]
     Indication: PRODUCT USED FOR UNKNOWN INDICATION

REACTIONS (6)
  - Hot flush [Not Recovered/Not Resolved]
  - Pain [Not Recovered/Not Resolved]
  - Arthralgia [Not Recovered/Not Resolved]
  - Insomnia [Not Recovered/Not Resolved]
  - Wrong technique in drug usage process [None]
  - Product quality issue [Not Recovered/Not Resolved]
